FAERS Safety Report 10648586 (Version 1)
Quarter: 2014Q4

REPORT INFORMATION
  Report Type: Spontaneous
  Country: US (occurrence: US)
  Receive Date: 20141212
  Receipt Date: 20141212
  Transmission Date: 20150529
  Serious: Yes (Hospitalization, Other)
  Sender: FDA-Public Use
  Company Number: US-ELI_LILLY_AND_COMPANY-US201412003310

PATIENT
  Sex: Female

DRUGS (3)
  1. HUMALOG [Suspect]
     Active Substance: INSULIN LISPRO
     Indication: TYPE 2 DIABETES MELLITUS
     Dosage: SLIDING SCALE WITH MEALS
     Route: 065
  2. LEVEMIR [Concomitant]
     Active Substance: INSULIN DETEMIR
  3. LANTUS [Concomitant]
     Active Substance: INSULIN GLARGINE

REACTIONS (6)
  - Myocardial infarction [Unknown]
  - Limb discomfort [Unknown]
  - Arthropathy [Unknown]
  - Cardiac failure congestive [Unknown]
  - Neoplasm malignant [Unknown]
  - Drug effect incomplete [Unknown]
